FAERS Safety Report 10600538 (Version 1)
Quarter: 2014Q4

REPORT INFORMATION
  Report Type: Spontaneous
  Country: FR (occurrence: FR)
  Receive Date: 20141124
  Receipt Date: 20141124
  Transmission Date: 20150529
  Serious: Yes (Other)
  Sender: FDA-Public Use
  Company Number: FR-BEH-2014046528

PATIENT
  Age: 65 Year
  Sex: Male

DRUGS (1)
  1. IVIG [Suspect]
     Active Substance: HUMAN IMMUNOGLOBULIN G
     Indication: DEMYELINATING POLYNEUROPATHY

REACTIONS (2)
  - Dermatitis allergic [Unknown]
  - Drug effect incomplete [Unknown]
